FAERS Safety Report 15074235 (Version 2)
Quarter: 2018Q3

REPORT INFORMATION
  Report Type: Report from Study
  Country: BE (occurrence: BE)
  Receive Date: 20180627
  Receipt Date: 20180905
  Transmission Date: 20181010
  Serious: Yes (Hospitalization)
  Sender: FDA-Public Use
  Company Number: BE-PFIZER INC-2018255459

PATIENT
  Sex: Female
  Weight: 89 kg

DRUGS (3)
  1. BEVACIZUMAB. [Suspect]
     Active Substance: BEVACIZUMAB
     Indication: OVARIAN CANCER
     Dosage: 1330 MG, EVERY 3 WEEKS
     Route: 042
     Dates: start: 20151203
  2. PACLITAXEL. [Suspect]
     Active Substance: PACLITAXEL
     Indication: OVARIAN CANCER
     Dosage: 175 MG/M2, EVERY 3 WEEKS
     Route: 042
     Dates: start: 20151022, end: 20160209
  3. CARBOPLATIN. [Suspect]
     Active Substance: CARBOPLATIN
     Indication: OVARIAN CANCER
     Dosage: 6 AUC, EVERY 3 WEEKS
     Route: 042
     Dates: start: 20151022, end: 20160209

REACTIONS (24)
  - Nausea [Recovered/Resolved]
  - Dyspnoea [Not Recovered/Not Resolved]
  - Upper respiratory tract infection [Recovered/Resolved]
  - Peripheral sensory neuropathy [Not Recovered/Not Resolved]
  - Asthenia [Unknown]
  - Back pain [Recovered/Resolved]
  - Vomiting [Recovered/Resolved]
  - Cough [Not Recovered/Not Resolved]
  - Musculoskeletal pain [Recovered/Resolved]
  - Nasopharyngitis [Recovered/Resolved]
  - Headache [Recovered/Resolved]
  - Alopecia [Not Recovered/Not Resolved]
  - Haemorrhoids [Not Recovered/Not Resolved]
  - Anaemia [Not Recovered/Not Resolved]
  - Epistaxis [Recovered/Resolved with Sequelae]
  - Decreased appetite [Recovered/Resolved]
  - Constipation [Not Recovered/Not Resolved]
  - Platelet count decreased [Recovered/Resolved]
  - Abdominal pain [Not Recovered/Not Resolved]
  - Constipation [Recovered/Resolved]
  - Oedema peripheral [Not Recovered/Not Resolved]
  - Dysphonia [Recovered/Resolved]
  - Abdominal pain [Recovered/Resolved]
  - Abdominal infection [Not Recovered/Not Resolved]

NARRATIVE: CASE EVENT DATE: 20151203
